FAERS Safety Report 9398603 (Version 1)
Quarter: 2013Q3

REPORT INFORMATION
  Report Type: Spontaneous
  Country: DE (occurrence: DE)
  Receive Date: 20130712
  Receipt Date: 20130712
  Transmission Date: 20140515
  Serious: Yes (Other)
  Sender: FDA-Public Use
  Company Number: GXKR2013DE002357

PATIENT
  Age: 31 Year
  Sex: Male

DRUGS (1)
  1. DICLO SL 1A PHARMA [Suspect]
     Dosage: 75 MG, BID
     Route: 048

REACTIONS (1)
  - Monoparesis [Recovered/Resolved]
